FAERS Safety Report 9308894 (Version 2)
Quarter: 2013Q3

REPORT INFORMATION
  Report Type: Spontaneous
  Country: DE (occurrence: DE)
  Receive Date: 20130524
  Receipt Date: 20130909
  Transmission Date: 20140515
  Serious: Yes (Other)
  Sender: FDA-Public Use
  Company Number: PHHY2013DE040439

PATIENT
  Sex: Female

DRUGS (7)
  1. JAKAVI [Suspect]
     Indication: THROMBOCYTOSIS
     Dosage: 15 MG, BID
     Route: 048
     Dates: start: 20120728, end: 20130415
  2. JAKAVI [Suspect]
     Dosage: 15 MG, QD
     Route: 048
     Dates: start: 201304, end: 20130514
  3. JAKAVI [Suspect]
     Dosage: 7.5 MG, QD (1/2 TABLET PER DAY)
     Route: 048
     Dates: start: 20130523, end: 20130604
  4. JAKAVI [Suspect]
     Dosage: 15 MG, QD
     Route: 048
     Dates: start: 20130605
  5. BISOPROLOL [Suspect]
     Indication: HYPERTENSION
     Dosage: UNK
  6. LISINOPRIL [Suspect]
     Indication: HYPERTENSION
     Dosage: UNK
  7. LEVOTHYROXINE [Concomitant]
     Indication: HYPOTHYROIDISM
     Dosage: UNK UKN, UNK

REACTIONS (8)
  - Hypertensive crisis [Recovering/Resolving]
  - Blood pressure increased [Recovering/Resolving]
  - Dizziness [Recovering/Resolving]
  - Palpitations [Recovering/Resolving]
  - Asthenia [Recovering/Resolving]
  - Hypertension [Recovering/Resolving]
  - Vitiligo [Not Recovered/Not Resolved]
  - Platelet count increased [Unknown]
